FAERS Safety Report 18326324 (Version 1)
Quarter: 2020Q3

REPORT INFORMATION
  Report Type: Spontaneous
  Country: DE (occurrence: DE)
  Receive Date: 20200929
  Receipt Date: 20200929
  Transmission Date: 20201103
  Serious: Yes (Hospitalization)
  Sender: FDA-Public Use
  Company Number: DE-MYLANLABS-2020M1082370

PATIENT
  Age: 69 Year
  Sex: Female

DRUGS (10)
  1. DIMETINDENE [Suspect]
     Active Substance: DIMETHINDENE
     Indication: ENCEPHALOPATHY
     Dosage: 4 MILLIGRAM
     Route: 065
  2. DIMETINDENE [Suspect]
     Active Substance: DIMETHINDENE
     Indication: ANTIALLERGIC THERAPY
  3. DIMENHYDRINATE. [Suspect]
     Active Substance: DIMENHYDRINATE
     Indication: ENCEPHALOPATHY
     Dosage: 62 MILLIGRAM
     Route: 042
  4. NACL [Concomitant]
     Active Substance: SODIUM CHLORIDE
     Indication: PRODUCT USED FOR UNKNOWN INDICATION
     Dosage: 20 MILLILITER(20 MILLILITER(ADMINISTERED ALONG WITH GADOBUTROL
     Route: 037
  5. PREDNISOLONE. [Suspect]
     Active Substance: PREDNISOLONE
     Indication: ENCEPHALOPATHY
     Dosage: 100 MILLIGRAM
     Route: 065
  6. PREDNISOLONE. [Suspect]
     Active Substance: PREDNISOLONE
     Indication: ANTIALLERGIC THERAPY
  7. LORAZEPAM. [Suspect]
     Active Substance: LORAZEPAM
     Indication: ENCEPHALOPATHY
     Dosage: 1 MILLIGRAM
     Route: 042
  8. RANITIDINE. [Suspect]
     Active Substance: RANITIDINE
     Indication: ANTIALLERGIC THERAPY
  9. GADOVIST [Concomitant]
     Active Substance: GADOBUTROL
     Indication: SCAN WITH CONTRAST
     Dosage: 2 MILLILITER(ADMINISTERED ALONG WITH NACL)
     Route: 037
  10. RANITIDINE. [Suspect]
     Active Substance: RANITIDINE
     Indication: ENCEPHALOPATHY
     Dosage: 50 MILLIGRAM
     Route: 065

REACTIONS (2)
  - Off label use [Unknown]
  - Drug ineffective for unapproved indication [Unknown]
